FAERS Safety Report 21407841 (Version 1)
Quarter: 2022Q4

REPORT INFORMATION
  Report Type: Spontaneous
  Country: US (occurrence: None)
  Receive Date: 20221003
  Receipt Date: 20221003
  Transmission Date: 20230113
  Serious: No
  Sender: FDA-Public Use
  Company Number: None

PATIENT
  Age: 64 Year
  Sex: Male
  Weight: 105.01 kg

DRUGS (17)
  1. INLYTA [Suspect]
     Active Substance: AXITINIB
     Indication: Renal cancer
     Dosage: OTHER FREQUENCY : Q12HOURS;?
     Route: 048
     Dates: start: 20220720, end: 20221001
  2. ANORO ELLIPTA [Concomitant]
  3. ATORVASTATIN [Concomitant]
  4. DEXAMETHASONE [Concomitant]
  5. DILTIAZEM [Concomitant]
  6. FISH OIL [Concomitant]
     Active Substance: FISH OIL
  7. FAMOTIDINE [Concomitant]
  8. HUMALOG [Concomitant]
  9. HYDRALAZINE [Concomitant]
  10. LEVETIRACETAM [Concomitant]
  11. LIDOCAINE-PRILOCAINE [Concomitant]
  12. LISINOPRIL [Concomitant]
  13. METFORMIN [Concomitant]
  14. ONDANSETRON [Concomitant]
  15. PROCHLORPERAZINE [Concomitant]
  16. QUETIAPINE [Concomitant]
  17. TAMSULOSIN [Concomitant]

REACTIONS (1)
  - Hospice care [None]
